FAERS Safety Report 5250285-7 (Version None)
Quarter: 2007Q1

REPORT INFORMATION
  Report Type: 
  Country: None (occurrence: None)
  Receive Date: 20070228
  Receipt Date: 20060316
  Transmission Date: 20070707
  Serious: No
  Sender: FDA-Public Use
  Company Number: US-GLAXOSMITHKLINE-A0597883A

PATIENT
  Age: 44 Year
  Sex: Male

DRUGS (4)
  1. LAMICTAL [Suspect]
     Indication: HYPOMANIA
     Dosage: 100MG PER DAY
     Route: 048
     Dates: start: 20060201
  2. PAROXETINE HCL [Suspect]
     Indication: DEPRESSION
     Dosage: 20MG PER DAY
     Route: 048
     Dates: start: 19980101
  3. XANAX [Concomitant]
  4. LISINOPRIL [Concomitant]

REACTIONS (1)
  - DRUG INEFFECTIVE [None]
